FAERS Safety Report 14195696 (Version 1)
Quarter: 2017Q4

REPORT INFORMATION
  Report Type: Spontaneous
  Country: US (occurrence: US)
  Receive Date: 20171116
  Receipt Date: 20171116
  Transmission Date: 20180321
  Serious: No
  Sender: FDA-Public Use
  Company Number: US-BAUSCH-BL-2017-011282

PATIENT
  Age: 75 Year
  Sex: Female
  Weight: 47.67 kg

DRUGS (4)
  1. XENAZINE [Suspect]
     Active Substance: TETRABENAZINE
     Route: 048
     Dates: start: 20170307
  2. XENAZINE [Suspect]
     Active Substance: TETRABENAZINE
     Indication: CHOREA
     Dosage: 1 TABLET DAILY FOR 1 WEEK,?1 TABLET TWICE  DAILY FOR 1 WEEK, THEN?1 TABLET THREE TIMES DAILY.
     Route: 048
     Dates: start: 20170221, end: 20170227
  3. XENAZINE [Suspect]
     Active Substance: TETRABENAZINE
     Route: 048
  4. XENAZINE [Suspect]
     Active Substance: TETRABENAZINE
     Route: 048
     Dates: start: 20170228, end: 20170306

REACTIONS (3)
  - Influenza [Recovered/Resolved]
  - Treatment noncompliance [Unknown]
  - Movement disorder [Recovered/Resolved]

NARRATIVE: CASE EVENT DATE: 2017
